FAERS Safety Report 14853497 (Version 3)
Quarter: 2018Q2

REPORT INFORMATION
  Report Type: Spontaneous
  Country: GB (occurrence: GB)
  Receive Date: 20180507
  Receipt Date: 20180622
  Transmission Date: 20180711
  Serious: Yes (Other)
  Sender: FDA-Public Use
  Company Number: PHHY2017GB202951

PATIENT
  Sex: Female

DRUGS (18)
  1. NEBIVOLOL. [Suspect]
     Active Substance: NEBIVOLOL
     Indication: BLOOD PRESSURE ABNORMAL
     Dosage: 2.5 MG, QD
     Route: 065
  2. PERINDOPRIL [Suspect]
     Active Substance: PERINDOPRIL
     Indication: PRODUCT USED FOR UNKNOWN INDICATION
     Dosage: 4 MG, QD
     Route: 048
  3. LYRICA [Suspect]
     Active Substance: PREGABALIN
     Indication: PRODUCT USED FOR UNKNOWN INDICATION
     Dosage: 150 MG, QD, (75 MG, 2X/DAY)
     Route: 065
  4. AMIODARONE HYDROCHLORIDE. [Suspect]
     Active Substance: AMIODARONE HYDROCHLORIDE
     Dosage: 200 MG, DAILY
     Route: 065
  5. PARACETAMOL+CODEINE [Suspect]
     Active Substance: ACETAMINOPHEN\CODEINE PHOSPHATE
     Indication: PRODUCT USED FOR UNKNOWN INDICATION
     Dosage: 1 DF, 4X/DAY (QID)
     Route: 048
  6. CLOPIDOGREL ZENTIVA [Suspect]
     Active Substance: CLOPIDOGREL BISULFATE
     Indication: PRODUCT USED FOR UNKNOWN INDICATION
     Dosage: 75 MG, QD
     Route: 065
  7. SALBUTAMOL [Suspect]
     Active Substance: ALBUTEROL
     Indication: COUGH
     Dosage: 2 DF, QD, (2 DF, 1X/DAY, (2 PUFF ONCE DAILY))
     Route: 055
  8. FABRAZYME [Suspect]
     Active Substance: AGALSIDASE BETA
     Dosage: 50 MG, Q2W, (50 MG, EVERY OTHER WEEK (FORTNIGHTLY))
     Route: 041
  9. LANSOPRAZOLE. [Suspect]
     Active Substance: LANSOPRAZOLE
     Indication: PRODUCT USED FOR UNKNOWN INDICATION
     Dosage: 30 MG, QD
     Route: 048
  10. AMIODARONE HYDROCHLORIDE. [Suspect]
     Active Substance: AMIODARONE HYDROCHLORIDE
     Indication: PRODUCT USED FOR UNKNOWN INDICATION
     Dosage: 200 MG, QD
     Route: 065
  11. FABRAZYME [Suspect]
     Active Substance: AGALSIDASE BETA
     Indication: PRODUCT USED FOR UNKNOWN INDICATION
     Dosage: 50 MG, Q2W, (50 MG, EVERY OTHER WEEK (FORTNIGHTLY))
     Route: 041
  12. FULTIUM D3 [Suspect]
     Active Substance: CHOLECALCIFEROL
     Indication: PRODUCT USED FOR UNKNOWN INDICATION
     Dosage: 800 IU, QD
     Route: 065
  13. CLOPIDOGREL HYDROGEN SULFATE [Suspect]
     Active Substance: CLOPIDOGREL BISULFATE
     Indication: PRODUCT USED FOR UNKNOWN INDICATION
     Dosage: 75 MG, QD
     Route: 048
  14. CITALOPRAM [Suspect]
     Active Substance: CITALOPRAM HYDROBROMIDE
     Indication: PRODUCT USED FOR UNKNOWN INDICATION
     Dosage: 10 MG, QD
     Route: 048
  15. COLECALCIFEROL [Suspect]
     Active Substance: CHOLECALCIFEROL
     Indication: PRODUCT USED FOR UNKNOWN INDICATION
     Dosage: 80 U, QD
     Route: 065
  16. COCODAMOL [Suspect]
     Active Substance: ACETAMINOPHEN\CODEINE PHOSPHATE
     Indication: PRODUCT USED FOR UNKNOWN INDICATION
     Dosage: 4 DF, QD, (1 DF, 4X/DAY (30/500 MG, 4X/DAY))
     Route: 048
  17. ACETYLSALICYLIC ACID [Suspect]
     Active Substance: ASPIRIN
     Indication: PRODUCT USED FOR UNKNOWN INDICATION
     Dosage: 75 MG, QD
     Route: 065
  18. ASPIRIN. [Suspect]
     Active Substance: ASPIRIN
     Indication: PRODUCT USED FOR UNKNOWN INDICATION
     Dosage: 75 NG, QD
     Route: 065

REACTIONS (3)
  - Wheezing [Unknown]
  - Lower respiratory tract infection [Unknown]
  - Cough [Recovered/Resolved]
